FAERS Safety Report 20193758 (Version 1)
Quarter: 2021Q4

REPORT INFORMATION
  Report Type: Spontaneous
  Country: US (occurrence: None)
  Receive Date: 20211216
  Receipt Date: 20211216
  Transmission Date: 20220303
  Serious: No
  Sender: FDA-Public Use
  Company Number: None

PATIENT
  Sex: Male
  Weight: 13.8 kg

DRUGS (4)
  1. MERCAPTOPURINE [Suspect]
     Active Substance: MERCAPTOPURINE
  2. METHOTREXATE [Suspect]
     Active Substance: METHOTREXATE
  3. VINCRISTINE SULFATE [Suspect]
     Active Substance: VINCRISTINE SULFATE
  4. DEXAMETHASONE [Suspect]
     Active Substance: DEXAMETHASONE

REACTIONS (3)
  - Weight increased [None]
  - Alanine aminotransferase increased [None]
  - Hepatocellular injury [None]

NARRATIVE: CASE EVENT DATE: 20210907
